FAERS Safety Report 8504268 (Version 4)
Quarter: 2014Q1

REPORT INFORMATION
  Report Type: Spontaneous
  Country: US (occurrence: US)
  Receive Date: 20120411
  Receipt Date: 20140121
  Transmission Date: 20141002
  Serious: Yes (Other)
  Sender: FDA-Public Use
  Company Number: US-BAYER-2012-033695

PATIENT
  Age: 32 Year
  Sex: Female
  Weight: 64.85 kg

DRUGS (4)
  1. MIRENA [Suspect]
     Indication: CONTRACEPTION
     Dosage: 20 MCG/24HR, CONT
     Route: 015
     Dates: start: 20080915, end: 20121031
  2. ANCEF [Concomitant]
     Dosage: 1 GM
  3. ZOFRAN [Concomitant]
     Dosage: 4 MG, UNK
  4. DECADRON [Concomitant]
     Dosage: 8 MG, UNK

REACTIONS (4)
  - Device dislocation [None]
  - Pregnancy with contraceptive device [Recovered/Resolved]
  - Drug ineffective [None]
  - Medical device complication [None]
